FAERS Safety Report 14418846 (Version 1)
Quarter: 2018Q1

REPORT INFORMATION
  Report Type: Spontaneous
  Country: SE (occurrence: SE)
  Receive Date: 20180122
  Receipt Date: 20180122
  Transmission Date: 20180509
  Serious: Yes (Other)
  Sender: FDA-Public Use
  Company Number: SE-TEVA-2018-SE-848810

PATIENT
  Age: 44 Year
  Sex: Female

DRUGS (1)
  1. PAROXETINE. [Suspect]
     Active Substance: PAROXETINE
     Route: 065

REACTIONS (11)
  - Somnolence [Recovering/Resolving]
  - Diplopia [Recovering/Resolving]
  - Migraine [Recovering/Resolving]
  - Dry eye [Recovering/Resolving]
  - Eye pain [Recovering/Resolving]
  - Headache [Recovering/Resolving]
  - Hypoaesthesia [Recovering/Resolving]
  - Eyelid ptosis [Recovering/Resolving]
  - Strabismus [Recovering/Resolving]
  - Musculoskeletal stiffness [Recovering/Resolving]
  - Photophobia [Recovering/Resolving]
